FAERS Safety Report 21074354 (Version 1)
Quarter: 2022Q3

REPORT INFORMATION
  Report Type: Spontaneous
  Country: BR (occurrence: BR)
  Receive Date: 20220713
  Receipt Date: 20220713
  Transmission Date: 20221027
  Serious: Yes (Other)
  Sender: FDA-Public Use
  Company Number: BR-CELLTRION INC.-2022BR010912

PATIENT

DRUGS (8)
  1. TRUXIMA [Suspect]
     Active Substance: RITUXIMAB-ABBS
     Indication: Lymphoma
     Dosage: 658 MG, CYCLIC
     Route: 042
     Dates: start: 20220627
  2. CHLORAMBUCIL [Suspect]
     Active Substance: CHLORAMBUCIL
     Indication: Lymphoma
     Dosage: UNK UNK, CYCLIC
     Dates: start: 20220627
  3. MORPHINE [Concomitant]
     Active Substance: MORPHINE
     Indication: Lymphoma
     Dosage: 100 MG
  4. ACETAMINOPHEN [Concomitant]
     Active Substance: ACETAMINOPHEN
     Indication: Premedication
     Dosage: 750 MG, CYCLIC
  5. CAPSAICIN [Concomitant]
     Active Substance: CAPSAICIN
     Indication: Lymphoma
     Dosage: UNK
  6. CALCIUM GLUCONATE [Concomitant]
     Active Substance: CALCIUM GLUCONATE
     Indication: Lymphoma
     Dosage: UNK
  7. DIPHENHYDRAMINE [Concomitant]
     Active Substance: DIPHENHYDRAMINE
     Indication: Premedication
     Dosage: 50 MG
  8. SODIUM CHLORIDE 0.9% + DEXTROSE 5% [Concomitant]
     Dosage: UNK, CYCLIC

REACTIONS (5)
  - Hypoxia [Recovered/Resolved]
  - Cough [Recovered/Resolved]
  - Erythema [Recovered/Resolved]
  - Chest discomfort [Recovered/Resolved]
  - Underdose [Unknown]

NARRATIVE: CASE EVENT DATE: 20220627
